FAERS Safety Report 9457471 (Version 4)
Quarter: 2013Q4

REPORT INFORMATION
  Report Type: Spontaneous
  Country: DE (occurrence: None)
  Receive Date: 20130812
  Receipt Date: 20131016
  Transmission Date: 20140711
  Serious: Yes (Hospitalization)
  Sender: FDA-Public Use
  Company Number: SYM-2013-07903

PATIENT
  Age: 76 Year
  Sex: Female

DRUGS (18)
  1. 5 FU [Suspect]
     Indication: COLORECTAL CANCER METASTATIC
     Route: 040
     Dates: start: 20130613, end: 20130613
  2. IRINOTECAN [Suspect]
     Indication: COLORECTAL CANCER METASTATIC
     Route: 042
     Dates: start: 20130613, end: 20130613
  3. LEUCOVORIN (FOLINIC ACID) (SOLUTION FOR INFUSION) (FOLINIC ACID) [Suspect]
     Indication: COLORECTAL CANCER METASTATIC
     Route: 042
     Dates: start: 20130613, end: 20130613
  4. AFLIBERCEPT [Suspect]
     Indication: COLORECTAL CANCER METASTATIC
     Route: 042
     Dates: start: 20130613, end: 20130613
  5. DIGOSTADA (BETA-ACETYLDIGOXIN) (BETA-ACETYLDIGOXIN) [Concomitant]
  6. ACETYLSALICYLIC ACID (ACETYLSALICYLIC ACID) [Concomitant]
  7. METOPROLOL (METOPROLOL) [Concomitant]
  8. AMLODIPINE (AMLODIPINE) [Concomitant]
  9. FLUVASTATIN (FLUVASTATIN) [Concomitant]
  10. DECORTIN (PREDNISONE) [Concomitant]
  11. OMEPRAZOLE (OMEPRAZOLE) [Concomitant]
  12. REMESTAN (TEMAZEPAM) [Concomitant]
  13. PARACETAMOL (PARACETAMOL) [Concomitant]
  14. DEXAMETHASONE (DEXAMETHASONE) [Concomitant]
  15. GRANISETRON (GRANISETRON) [Concomitant]
  16. FUROSEMIDE (FUROSEMIDE) [Concomitant]
  17. CLEXANE (ENOXAPARIN SODIUM) [Concomitant]
  18. NOVAMIN (PROCHLORPERAZINE) [Concomitant]

REACTIONS (5)
  - Deep vein thrombosis [None]
  - Pelvic venous thrombosis [None]
  - Deep vein thrombosis [None]
  - General physical health deterioration [None]
  - Disease progression [None]
